FAERS Safety Report 9304602 (Version 1)
Quarter: 2013Q2

REPORT INFORMATION
  Report Type: Spontaneous
  Country: US (occurrence: US)
  Receive Date: 20130523
  Receipt Date: 20130523
  Transmission Date: 20140414
  Serious: Yes (Hospitalization)
  Sender: FDA-Public Use
  Company Number: US-BIOGENIDEC-2013BI044903

PATIENT
  Age: 43 Year
  Sex: Female

DRUGS (2)
  1. TECFIDERA [Suspect]
     Dates: start: 20130427, end: 20130504
  2. AVONEX [Concomitant]
     Route: 030
     Dates: start: 20080301

REACTIONS (24)
  - Kidney infection [Unknown]
  - Multiple sclerosis [Unknown]
  - Memory impairment [Unknown]
  - Gait disturbance [Unknown]
  - Obsessive-compulsive disorder [Unknown]
  - Anxiety [Unknown]
  - Stress [Unknown]
  - Influenza like illness [Unknown]
  - Sexual dysfunction [Unknown]
  - Paraesthesia [Unknown]
  - Coordination abnormal [Unknown]
  - Carpal tunnel syndrome [Unknown]
  - Asthenia [Unknown]
  - Feeling of despair [Unknown]
  - Crying [Unknown]
  - Pallor [Unknown]
  - Pyrexia [Unknown]
  - Verbal abuse [Unknown]
  - Sensory loss [Unknown]
  - General symptom [Unknown]
  - Flushing [Unknown]
  - Nausea [Unknown]
  - Vomiting [Unknown]
  - Abdominal pain upper [Unknown]
